FAERS Safety Report 25476242 (Version 1)
Quarter: 2025Q2

REPORT INFORMATION
  Report Type: Spontaneous
  Country: US (occurrence: US)
  Receive Date: 20250625
  Receipt Date: 20250625
  Transmission Date: 20250716
  Serious: No
  Sender: AMGEN
  Company Number: US-AMGEN-USASP2025119822

PATIENT
  Sex: Female

DRUGS (9)
  1. EVENITY [Suspect]
     Active Substance: ROMOSOZUMAB-AQQG
     Indication: Gastrooesophageal reflux disease
     Route: 065
  2. EVENITY [Suspect]
     Active Substance: ROMOSOZUMAB-AQQG
     Indication: Off label use
  3. FAMOTINE [Concomitant]
     Active Substance: FAMOTINE
     Indication: Product used for unknown indication
     Route: 065
  4. FAMOTINE [Concomitant]
     Active Substance: FAMOTINE
     Route: 065
  5. DICLOFENAC [Concomitant]
     Active Substance: DICLOFENAC
     Indication: Product used for unknown indication
     Route: 061
  6. DICLOFENAC [Concomitant]
     Active Substance: DICLOFENAC
     Route: 061
  7. RESTASIS [Concomitant]
     Active Substance: CYCLOSPORINE
     Indication: Product used for unknown indication
     Route: 065
  8. RESTASIS [Concomitant]
     Active Substance: CYCLOSPORINE
     Route: 065
  9. BONIVA [Concomitant]
     Active Substance: IBANDRONATE SODIUM

REACTIONS (9)
  - Adverse drug reaction [Unknown]
  - Tendonitis [Unknown]
  - Pain [Unknown]
  - Headache [Unknown]
  - Contusion [Unknown]
  - Back pain [Unknown]
  - Arthralgia [Unknown]
  - Sports injury [Unknown]
  - Road traffic accident [Unknown]
